FAERS Safety Report 20804974 (Version 1)
Quarter: 2022Q2

REPORT INFORMATION
  Report Type: Spontaneous
  Country: US (occurrence: US)
  Receive Date: 20220509
  Receipt Date: 20220509
  Transmission Date: 20220721
  Serious: Yes (Other)
  Sender: FDA-Public Use
  Company Number: US-ORGANON-O2205USA000491

PATIENT
  Sex: Female
  Weight: 116.57 kg

DRUGS (1)
  1. NEXPLANON [Suspect]
     Active Substance: ETONOGESTREL
     Indication: Contraception
     Dosage: 68 MG (1 IMPLANT) IN LEFT ARM, ONCE
     Route: 059
     Dates: start: 20220502, end: 20220504

REACTIONS (3)
  - Device expulsion [Recovered/Resolved]
  - Implant site pain [Recovered/Resolved]
  - Implant site reaction [Recovered/Resolved]

NARRATIVE: CASE EVENT DATE: 20220501
